FAERS Safety Report 24300940 (Version 3)
Quarter: 2024Q4

REPORT INFORMATION
  Report Type: Spontaneous
  Country: GB (occurrence: GB)
  Receive Date: 20240910
  Receipt Date: 20241217
  Transmission Date: 20250114
  Serious: Yes (Life-Threatening, Hospitalization, Other)
  Sender: AUROBINDO
  Company Number: GB-MLMSERVICE-20240826-PI173353-00040-1

PATIENT
  Age: 8 Decade
  Sex: Female

DRUGS (3)
  1. ALENDRONIC ACID [Suspect]
     Active Substance: ALENDRONIC ACID
     Indication: Product used for unknown indication
     Dosage: 70 MILLIGRAM, EVERY WEEK (ACUTE ASPIRATION WHEN TAKING WEEKLY 70 MG ALENDRONIC ACID)
     Route: 048
  2. SODIUM CHLORIDE [Concomitant]
     Active Substance: SODIUM CHLORIDE
     Indication: Product used for unknown indication
     Dosage: UNK
     Route: 065
  3. EPINEPHRINE [Concomitant]
     Active Substance: EPINEPHRINE
     Indication: Product used for unknown indication
     Dosage: UNK
     Route: 065

REACTIONS (6)
  - Foreign body aspiration [Recovered/Resolved]
  - Chemical burn of respiratory tract [Recovered/Resolved with Sequelae]
  - Lower respiratory tract inflammation [Recovered/Resolved]
  - Obstructive airways disorder [Recovered/Resolved]
  - Respiratory distress [Unknown]
  - Medication error [Unknown]
